FAERS Safety Report 15300084 (Version 1)
Quarter: 2018Q3

REPORT INFORMATION
  Report Type: Spontaneous
  Country: US (occurrence: US)
  Receive Date: 20180808
  Receipt Date: 20180808
  Transmission Date: 20181010
  Serious: Yes (Life-Threatening, Other)
  Sender: FDA-Public Use
  Company Number: None

PATIENT
  Age: 26 Year
  Sex: Female

DRUGS (1)
  1. CARBAZEPINE 600MG [Suspect]
     Active Substance: CARBAMAZEPINE
     Dosage: PRIOR TO 2011,
     Route: 048
     Dates: start: 2011

REACTIONS (2)
  - Seizure [None]
  - Product substitution issue [None]
